FAERS Safety Report 12806244 (Version 8)
Quarter: 2017Q3

REPORT INFORMATION
  Report Type: Spontaneous
  Country: US (occurrence: US)
  Receive Date: 20161004
  Receipt Date: 20170807
  Transmission Date: 20171127
  Serious: Yes (Congenital Anomaly, Other)
  Sender: FDA-Public Use
  Company Number: PHHY2015US130660

PATIENT
  Sex: Male

DRUGS (3)
  1. ONDANSETRON DR REDDY [Suspect]
     Active Substance: ONDANSETRON
     Indication: FOETAL EXPOSURE DURING PREGNANCY
     Dosage: MOTHER^S DOSE: 8 MG, TID
     Route: 064
  2. ZOFRAN [Suspect]
     Active Substance: ONDANSETRON HYDROCHLORIDE
     Indication: FOETAL EXPOSURE DURING PREGNANCY
     Route: 064
  3. ONDANSETRON [Suspect]
     Active Substance: ONDANSETRON
     Indication: FOETAL EXPOSURE DURING PREGNANCY
     Dosage: MOTHER^S DOSE: 8 MG, TID
     Route: 064

REACTIONS (46)
  - Congenital arterial malformation [Unknown]
  - Failure to thrive [Unknown]
  - Acanthosis [Unknown]
  - Candida infection [Unknown]
  - Decreased appetite [Unknown]
  - Dyspnoea [Unknown]
  - Headache [Unknown]
  - Pulmonary valve stenosis congenital [Unknown]
  - Choking [Unknown]
  - Anhedonia [Unknown]
  - Poor feeding infant [Unknown]
  - Congenital anomaly [Unknown]
  - Congenital heart valve disorder [Unknown]
  - Seizure [Unknown]
  - Gastrooesophageal reflux disease [Unknown]
  - Acute sinusitis [Unknown]
  - Atrial septal defect [Unknown]
  - Macrocephaly [Unknown]
  - Sepsis neonatal [Recovered/Resolved]
  - Bronchiolitis [Unknown]
  - Cardiac murmur [Unknown]
  - Gastroenteritis [Unknown]
  - Congenital hydrocephalus [Unknown]
  - Noonan syndrome [Unknown]
  - Foetal exposure during pregnancy [Unknown]
  - Premature baby [Unknown]
  - Developmental delay [Unknown]
  - Upper respiratory tract infection [Unknown]
  - Asthma [Unknown]
  - Rhinitis [Unknown]
  - Congenital central nervous system anomaly [Unknown]
  - Pneumothorax [Recovered/Resolved]
  - Neonatal pneumonia [Unknown]
  - Oesophagitis [Unknown]
  - Jaundice [Unknown]
  - Diarrhoea [Unknown]
  - Plagiocephaly [Unknown]
  - Hyperbilirubinaemia [Recovered/Resolved]
  - Weight gain poor [Unknown]
  - Body height below normal [Unknown]
  - Rash [Unknown]
  - Heart disease congenital [Unknown]
  - Neonatal respiratory distress syndrome [Recovered/Resolved]
  - Otitis media [Unknown]
  - Pharyngitis [Unknown]
  - Eczema [Unknown]
